FAERS Safety Report 16609984 (Version 1)
Quarter: 2019Q3

REPORT INFORMATION
  Report Type: Spontaneous
  Country: US (occurrence: US)
  Receive Date: 20190607
  Receipt Date: 20190607
  Transmission Date: 20191004
  Serious: Yes (Life-Threatening)
  Sender: FDA-Public Use
  Company Number: None

PATIENT
  Age: 66 Year
  Sex: Male
  Weight: 79.83 kg

DRUGS (1)
  1. ALEVE [Suspect]
     Active Substance: NAPROXEN SODIUM
     Indication: HEADACHE
     Dosage: ?          QUANTITY:220 MG MILLIGRAM(S);?
     Route: 048
     Dates: start: 20180526, end: 20180526

REACTIONS (5)
  - Stevens-Johnson syndrome [None]
  - Neuropathy peripheral [None]
  - Skin discolouration [None]
  - Throat cancer [None]
  - Neoplasm malignant [None]

NARRATIVE: CASE EVENT DATE: 20180526
